FAERS Safety Report 5033127-4 (Version None)
Quarter: 2006Q2

REPORT INFORMATION
  Report Type: 
  Country: None (occurrence: None)
  Receive Date: 20060622
  Receipt Date: 20060517
  Transmission Date: 20061013
  Serious: Yes (Other)
  Sender: FDA-Public Use
  Company Number: US-BRISTOL-MYERS SQUIBB COMPANY-13380761

PATIENT
  Age: 63 Year
  Sex: Female

DRUGS (16)
  1. ORENCIA [Suspect]
     Indication: RHEUMATOID ARTHRITIS
     Route: 042
     Dates: start: 20060517, end: 20060517
  2. METHOTREXATE [Concomitant]
  3. CEFADROXIL [Concomitant]
  4. MEDROL [Concomitant]
  5. CELEBREX [Concomitant]
  6. PHENOBARBITAL [Concomitant]
  7. FOLIC ACID [Concomitant]
  8. ASCORBIC ACID [Concomitant]
  9. VITAMIN E [Concomitant]
  10. NEXIUM [Concomitant]
  11. M.V.I. [Concomitant]
  12. TOBRAMYCIN [Concomitant]
     Route: 047
  13. CIPRO [Concomitant]
  14. FLAGYL [Concomitant]
  15. LORTAB [Concomitant]
  16. FISH OIL [Concomitant]

REACTIONS (4)
  - ERYTHEMA [None]
  - SWELLING FACE [None]
  - SYNCOPE [None]
  - URTICARIA [None]
